FAERS Safety Report 15306004 (Version 1)
Quarter: 2018Q4

REPORT INFORMATION
  Report Type: Spontaneous
  Country: IT (occurrence: IT)
  Receive Date: 20180822
  Receipt Date: 20180822
  Transmission Date: 20190204
  Serious: Yes (Disabling)
  Sender: FDA-Public Use
  Company Number: IT-TEVA-2018-IT-946026

PATIENT
  Age: 46 Year
  Sex: Female

DRUGS (7)
  1. DEANOLO-P-ACETAMIDO BENZOATO [Suspect]
     Active Substance: DEANOL ACETAMIDOBENZOATE
     Indication: WEIGHT LOSS DIET
     Dosage: 180 MILLIGRAM DAILY;
     Route: 048
     Dates: start: 20111101
  2. METFORMIN [Suspect]
     Active Substance: METFORMIN HYDROCHLORIDE
     Indication: WEIGHT LOSS DIET
     Dosage: 300 MILLIGRAM DAILY;
     Route: 048
     Dates: start: 20111101
  3. FUCUS VESCICULOSUS ESTRATTO SECCO [Suspect]
     Active Substance: FUCUS VESICULOSUS
     Indication: WEIGHT LOSS DIET
     Dosage: 3 MILLIGRAM DAILY;
     Route: 048
     Dates: start: 20111101
  4. BUPROPIONE CLORIDRATO [Suspect]
     Active Substance: BUPROPION HYDROCHLORIDE
     Indication: WEIGHT LOSS DIET
     Dosage: 150 MILLIGRAM DAILY;
     Route: 048
     Dates: start: 20111101
  5. FUROSEMIDE. [Suspect]
     Active Substance: FUROSEMIDE
     Indication: WEIGHT LOSS DIET
     Dosage: 9 MILLIGRAM DAILY;
     Route: 048
     Dates: start: 20111101
  6. EFEDRINA CLORIDRATO [Suspect]
     Active Substance: EPHEDRINE HYDROCHLORIDE
     Indication: WEIGHT LOSS DIET
     Dosage: 135 MILLIGRAM DAILY;
     Route: 048
     Dates: start: 20111101
  7. SINEFRINA TARTRATO [Suspect]
     Active Substance: OXEDRINE TARTRATE
     Indication: WEIGHT LOSS DIET
     Dosage: 120 MILLIGRAM DAILY;
     Route: 048
     Dates: start: 20111101

REACTIONS (2)
  - Aphasia [Recovered/Resolved with Sequelae]
  - Ischaemic stroke [Recovered/Resolved with Sequelae]

NARRATIVE: CASE EVENT DATE: 20120203
